FAERS Safety Report 15352607 (Version 1)
Quarter: 2018Q3

REPORT INFORMATION
  Report Type: Report from Study
  Country: MX (occurrence: MX)
  Receive Date: 20180905
  Receipt Date: 20180905
  Transmission Date: 20181010
  Serious: Yes (Other)
  Sender: FDA-Public Use
  Company Number: MX-SA-2018SA239899

PATIENT
  Age: 70 Year
  Sex: Female
  Weight: 87 kg

DRUGS (3)
  1. COAPROVEL [Suspect]
     Active Substance: HYDROCHLOROTHIAZIDE\IRBESARTAN
     Dosage: 1 DF, QD (300 MG OF IRBESARTAN + 25 MG OF HYDROCHLOROTHIAZIDE)
     Route: 048
     Dates: start: 201802
  2. COAPROVEL [Suspect]
     Active Substance: HYDROCHLOROTHIAZIDE\IRBESARTAN
     Dosage: 1 DF, QD (150 MG OF IRBESARTAN + 12.5 MG OF HYDROCHLOROTHIAZIDE)
  3. CLOPIDOGREL BISULFATE. [Suspect]
     Active Substance: CLOPIDOGREL BISULFATE
     Dosage: UNK

REACTIONS (1)
  - Arrhythmia [Unknown]

NARRATIVE: CASE EVENT DATE: 201802
